FAERS Safety Report 14663280 (Version 1)
Quarter: 2018Q1

REPORT INFORMATION
  Report Type: Spontaneous
  Country: US (occurrence: US)
  Receive Date: 20180319
  Receipt Date: 20180319
  Transmission Date: 20180509
  Serious: No
  Sender: FDA-Public Use
  Company Number: None

PATIENT
  Age: 49 Year
  Sex: Female

DRUGS (1)
  1. TASIGNA [Suspect]
     Active Substance: NILOTINIB
     Indication: MYELOID LEUKAEMIA
     Route: 048
     Dates: start: 20170313

REACTIONS (2)
  - Limb injury [None]
  - Foot fracture [None]

NARRATIVE: CASE EVENT DATE: 20180316
